FAERS Safety Report 8855053 (Version 1)
Quarter: 2012Q4

REPORT INFORMATION
  Report Type: 
  Country: US (occurrence: US)
  Receive Date: 20121023
  Receipt Date: 20121023
  Transmission Date: 20130627
  Serious: No
  Sender: FDA-Public Use
  Company Number: US-PFIZER INC-2012259218

PATIENT
  Age: 57 Year
  Sex: Male

DRUGS (1)
  1. BOSULIF [Suspect]
     Indication: CHRONIC MYELOID LEUKAEMIA
     Dosage: 500 mg, daily
     Route: 048
     Dates: start: 20121013

REACTIONS (1)
  - Diarrhoea [Recovered/Resolved]
